FAERS Safety Report 6664611-5 (Version None)
Quarter: 2010Q1

REPORT INFORMATION
  Report Type: 
  Country: None (occurrence: None)
  Receive Date: 20100330
  Receipt Date: 20091209
  Transmission Date: 20100710
  Serious: Yes (Hospitalization)
  Sender: FDA-Public Use
  Company Number: 6056571

PATIENT
  Age: 72 Year
  Sex: Female

DRUGS (9)
  1. LEVOTHYROXINE SODIUM [Suspect]
     Indication: THYROIDECTOMY
     Dosage: 112.5 MCG (112.5 MCG, 1 IN 1 D)
     Route: 048
  2. PREVISCAN (20 MG, TABLET) (FLUINDIONE) [Suspect]
     Indication: ATRIAL FIBRILLATION
     Dosage: 1.25 DF ACCORDING TO INR
     Route: 048
     Dates: end: 20081124
  3. PROZAC [Suspect]
     Indication: DEPRESSION
     Dosage: 1 DOSAGE FORMS (1 DOSAGE FORMS, 1 IN 1 D)
  4. RAMIPRIL [Concomitant]
  5. LERCANIDIPINE [Concomitant]
  6. SOTALEX (80 MG, TABLET) (SOTALOL HYDROCHLORIDE) [Concomitant]
  7. TOPALGIC LP (150 MG) (TRAMADOL HYDROCHLORIDE) [Concomitant]
  8. ATARAX [Concomitant]
  9. MEDIATOR (150 MG) (BENFLUOREX HYDROCHLORIDE) [Concomitant]

REACTIONS (8)
  - ASTHENIA [None]
  - COAGULOPATHY [None]
  - DRUG INTERACTION [None]
  - HAEMOLYSIS [None]
  - HAEMORRHAGIC ANAEMIA [None]
  - INFLAMMATION [None]
  - INTERNATIONAL NORMALISED RATIO INCREASED [None]
  - MEDICATION ERROR [None]
